FAERS Safety Report 12316977 (Version 1)
Quarter: 2016Q2

REPORT INFORMATION
  Report Type: Spontaneous
  Country: US (occurrence: None)
  Receive Date: 20160428
  Receipt Date: 20160428
  Transmission Date: 20160815
  Serious: Yes (Other)
  Sender: FDA-Public Use
  Company Number: None

PATIENT
  Age: 57 Year
  Sex: Female

DRUGS (1)
  1. POTASSIUM CITRATE ER 15 MEQ, 15 MEQ [Suspect]
     Active Substance: POTASSIUM CITRATE
     Indication: RENAL LITHIASIS PROPHYLAXIS
     Route: 048
     Dates: start: 20160423, end: 20160425

REACTIONS (7)
  - Nausea [None]
  - Diarrhoea [None]
  - Abdominal distension [None]
  - Muscle spasms [None]
  - Flatulence [None]
  - Product substitution issue [None]
  - Vomiting [None]

NARRATIVE: CASE EVENT DATE: 20160423
